FAERS Safety Report 9897558 (Version 4)
Quarter: 2015Q1

REPORT INFORMATION
  Report Type: Spontaneous
  Country: US (occurrence: US)
  Receive Date: 20140214
  Receipt Date: 20150123
  Transmission Date: 20150721
  Serious: Yes (Hospitalization, Other)
  Sender: FDA-Public Use
  Company Number: US-BAYER-2014-023646

PATIENT
  Age: 22 Year
  Sex: Female
  Weight: 59.41 kg

DRUGS (6)
  1. METRONIDAZOLE. [Concomitant]
     Active Substance: METRONIDAZOLE
  2. MIRENA [Suspect]
     Active Substance: LEVONORGESTREL
     Indication: CONTRACEPTION
     Dosage: 20 MCG/24HR, CONT
     Route: 015
     Dates: start: 20080111, end: 20130618
  3. IBUPROFEN. [Concomitant]
     Active Substance: IBUPROFEN
     Dosage: UNK
  4. FLAGYL [Concomitant]
     Active Substance: METRONIDAZOLE\METRONIDAZOLE HYDROCHLORIDE
  5. DIFLUCAN [Concomitant]
     Active Substance: FLUCONAZOLE
  6. NORCO [Concomitant]
     Active Substance: ACETAMINOPHEN\HYDROCODONE BITARTRATE
     Indication: PAIN
     Dosage: UNK, PRN

REACTIONS (9)
  - Device failure [None]
  - Embedded device [None]
  - Medical device discomfort [None]
  - Scar [None]
  - Medical device pain [None]
  - Procedural pain [None]
  - Injury [None]
  - Device issue [None]
  - Pain [None]

NARRATIVE: CASE EVENT DATE: 20130618
